FAERS Safety Report 14617372 (Version 1)
Quarter: 2018Q1

REPORT INFORMATION
  Report Type: Spontaneous
  Country: US (occurrence: US)
  Receive Date: 20180309
  Receipt Date: 20180309
  Transmission Date: 20180509
  Serious: Yes (Life-Threatening, Hospitalization, Other)
  Sender: FDA-Public Use
  Company Number: US-AMGEN-USASP2018028545

PATIENT
  Age: 59 Year
  Sex: Female

DRUGS (2)
  1. ENBREL [Suspect]
     Active Substance: ETANERCEPT
     Indication: RHEUMATOID ARTHRITIS
     Dosage: UNK
     Route: 065
  2. METHOTREXATE. [Concomitant]
     Active Substance: METHOTREXATE
     Dosage: UNK

REACTIONS (11)
  - Platelet count abnormal [Unknown]
  - White blood cell count [Unknown]
  - Aplastic anaemia [Not Recovered/Not Resolved]
  - Organ failure [Unknown]
  - Sepsis [Unknown]
  - Pancytopenia [Unknown]
  - Neutrophil toxic granulation present [Unknown]
  - Pasteurella infection [Unknown]
  - Neutrophil count abnormal [Unknown]
  - Blood bilirubin increased [Unknown]
  - Prosthesis user [Unknown]
